FAERS Safety Report 7526731-2 (Version None)
Quarter: 2011Q2

REPORT INFORMATION
  Report Type: 
  Country: None (occurrence: None)
  Receive Date: 20110606
  Receipt Date: 20110526
  Transmission Date: 20111010
  Serious: Yes (Other)
  Sender: FDA-Public Use
  Company Number: US-ASTRAZENECA-2011SE32965

PATIENT
  Age: 56 Year
  Sex: Male

DRUGS (3)
  1. ANTI-REJECTION MEDICATION [Concomitant]
  2. NEXIUM [Suspect]
     Route: 048
  3. PRILOSEC [Suspect]
     Dosage: UNKNOWN DOSE, IN THE MORNINGS
     Route: 048

REACTIONS (3)
  - GASTROOESOPHAGEAL REFLUX DISEASE [None]
  - LIVER TRANSPLANT [None]
  - DRUG EFFECT DECREASED [None]
